FAERS Safety Report 18019947 (Version 2)
Quarter: 2021Q4

REPORT INFORMATION
  Report Type: Spontaneous
  Country: US (occurrence: US)
  Receive Date: 20200714
  Receipt Date: 20211227
  Transmission Date: 20220303
  Serious: No
  Sender: FDA-Public Use
  Company Number: US-PFIZER INC-2020268467

PATIENT
  Age: 62 Year
  Sex: Male

DRUGS (1)
  1. PREGABALIN [Suspect]
     Active Substance: PREGABALIN
     Dosage: 100 MG, THREE TIMES A DAY

REACTIONS (9)
  - Pain in extremity [Unknown]
  - Abdominal pain upper [Unknown]
  - Gastrointestinal pain [Unknown]
  - Liver disorder [Unknown]
  - Duchenne muscular dystrophy [Unknown]
  - Infection [Unknown]
  - Somnolence [Unknown]
  - Pain [Unknown]
  - Constipation [Unknown]
